FAERS Safety Report 17676596 (Version 1)
Quarter: 2020Q2

REPORT INFORMATION
  Report Type: Spontaneous
  Country: None (occurrence: EC)
  Receive Date: 20200416
  Receipt Date: 20200416
  Transmission Date: 20200714
  Serious: Yes (Death)
  Sender: FDA-Public Use
  Company Number: EC-IPSEN BIOPHARMACEUTICALS, INC.-2020-02210

PATIENT
  Age: 74 Year
  Sex: Male

DRUGS (1)
  1. DYSPORT [Suspect]
     Active Substance: ABOBOTULINUMTOXINA
     Indication: MUSCLE SPASTICITY
     Dosage: 500 IU
     Route: 058
     Dates: start: 20150316

REACTIONS (3)
  - Cerebrovascular accident [Fatal]
  - Neck pain [Unknown]
  - Incorrect route of product administration [Unknown]

NARRATIVE: CASE EVENT DATE: 20150316
